FAERS Safety Report 11123136 (Version 1)
Quarter: 2015Q2

REPORT INFORMATION
  Report Type: Spontaneous
  Country: DE (occurrence: DE)
  Receive Date: 20150519
  Receipt Date: 20150519
  Transmission Date: 20150821
  Serious: Yes (Death, Congenital Anomaly)
  Sender: FDA-Public Use
  Company Number: GXKR2015DE002453

PATIENT

DRUGS (4)
  1. DECENTAN [Suspect]
     Active Substance: PERPHENAZINE
     Indication: OBSESSIVE-COMPULSIVE DISORDER
     Dosage: 8 [MG/D ], 0.-6. GW
     Route: 064
  2. TREVILOR RETARD [Suspect]
     Active Substance: VENLAFAXINE HYDROCHLORIDE
     Indication: DEPRESSION
     Dosage: 150 MG, BID, LONG TERM EXPOSURE
     Route: 064
  3. DIPIPERON [Suspect]
     Active Substance: PIPAMPERONE
     Indication: SLEEP DISORDER
     Dosage: UKN, 0.-6. GW
     Route: 064
  4. PROMETHAZINE [Suspect]
     Active Substance: PROMETHAZINE\PROMETHAZINE HYDROCHLORIDE
     Indication: SLEEP DISORDER
     Dosage: UKN, 0.-6. GW
     Route: 064

REACTIONS (2)
  - Heart disease congenital [Fatal]
  - Maternal drugs affecting foetus [None]
